FAERS Safety Report 7879833-5 (Version None)
Quarter: 2011Q4

REPORT INFORMATION
  Report Type: 
  Country: None (occurrence: None)
  Receive Date: 20111101
  Receipt Date: 20111024
  Transmission Date: 20120403
  Serious: Yes (Other)
  Sender: FDA-Public Use
  Company Number: BE-B.I. PHARMACEUTICALS,INC./RIDGEFIELD-2011-BL-00228BL

PATIENT

DRUGS (1)
  1. PRADAXA [Suspect]

REACTIONS (1)
  - ADVERSE EVENT [None]
